FAERS Safety Report 4655490-6 (Version None)
Quarter: 2005Q2

REPORT INFORMATION
  Report Type: 
  Country: None (occurrence: None)
  Receive Date: 20050505
  Receipt Date: 20050418
  Transmission Date: 20051028
  Serious: Yes (Death, Other)
  Sender: FDA-Public Use
  Company Number: US_0504115456

PATIENT
  Age: 15 Year
  Sex: Female

DRUGS (5)
  1. GEMZAR [Suspect]
     Indication: RENAL CELL CARCINOMA STAGE UNSPECIFIED
     Dosage: 1000 MG/M2 OTHER
  2. CISPLATIN [Concomitant]
  3. PACLITAXEL [Concomitant]
  4. CARBOPLATIN [Concomitant]
  5. PEGFILGRASTIM [Concomitant]

REACTIONS (14)
  - ANAEMIA [None]
  - DEAFNESS [None]
  - HAEMATOTOXICITY [None]
  - HYPOKALAEMIA [None]
  - HYPOMAGNESAEMIA [None]
  - HYPOPHOSPHATAEMIA [None]
  - LIVER DISORDER [None]
  - LYMPHADENOPATHY [None]
  - MALIGNANT NEOPLASM PROGRESSION [None]
  - NEOPLASM RECURRENCE [None]
  - NEPHROPATHY TOXIC [None]
  - NEUTROPENIA [None]
  - POST PROCEDURAL NAUSEA [None]
  - THROMBOCYTOPENIA [None]
